FAERS Safety Report 5592912-0 (Version None)
Quarter: 2008Q1

REPORT INFORMATION
  Report Type: 
  Country: None (occurrence: None)
  Receive Date: 20080116
  Receipt Date: 20080104
  Transmission Date: 20080703
  Serious: Yes (Hospitalization)
  Sender: FDA-Public Use
  Company Number: CA-BAYER-200710165GDS

PATIENT
  Age: 60 Year
  Sex: Male
  Weight: 61 kg

DRUGS (28)
  1. SORAFENIB [Suspect]
     Indication: NON-SMALL CELL LUNG CANCER
     Route: 048
     Dates: end: 20070105
  2. SORAFENIB [Suspect]
     Route: 048
     Dates: start: 20060929, end: 20061016
  3. SORAFENIB [Suspect]
     Route: 048
     Dates: start: 20061016, end: 20061105
  4. SORAFENIB [Suspect]
     Route: 048
     Dates: start: 20061201, end: 20061218
  5. SORAFENIB [Suspect]
     Route: 048
     Dates: start: 20061110, end: 20061127
  6. SORAFENIB [Suspect]
     Route: 048
     Dates: start: 20061106, end: 20061106
  7. CARBOPLATIN [Suspect]
     Indication: NON-SMALL CELL LUNG CANCER
     Route: 042
     Dates: start: 20061229, end: 20061229
  8. CARBOPLATIN [Suspect]
     Route: 042
     Dates: start: 20061130, end: 20061130
  9. CARBOPLATIN [Suspect]
     Route: 042
     Dates: start: 20060928, end: 20060928
  10. CARBOPLATIN [Suspect]
     Route: 042
     Dates: start: 20061019, end: 20061019
  11. CARBOPLATIN [Suspect]
     Route: 042
     Dates: start: 20061109, end: 20061109
  12. PACLITAXEL [Suspect]
     Indication: NON-SMALL CELL LUNG CANCER
     Route: 042
     Dates: start: 20061229, end: 20061229
  13. PACLITAXEL [Suspect]
     Route: 042
     Dates: start: 20060928, end: 20060928
  14. PACLITAXEL [Suspect]
     Route: 042
     Dates: start: 20061109, end: 20061109
  15. PACLITAXEL [Suspect]
     Route: 042
     Dates: start: 20061019, end: 20061019
  16. PACLITAXEL [Suspect]
     Route: 042
     Dates: start: 20061130, end: 20061130
  17. DIOVAN [Concomitant]
     Indication: HYPERTENSION
     Route: 048
     Dates: start: 20060924
  18. APO-CEPHALEX [Concomitant]
     Indication: ILL-DEFINED DISORDER
     Dosage: TOTAL DAILY DOSE: 2000 MG
     Route: 048
     Dates: start: 20061116, end: 20061123
  19. ACETAMINOPHEN AND OXYCODONE HCL [Concomitant]
     Route: 048
     Dates: start: 20061107
  20. PREDNISONE TAB [Concomitant]
     Indication: DRUG USE FOR UNKNOWN INDICATION
     Dosage: UNIT DOSE: 50 MG
     Route: 048
     Dates: start: 20061108, end: 20061109
  21. SENOKOT [Concomitant]
     Indication: CONSTIPATION PROPHYLAXIS
     Route: 048
     Dates: start: 20061010
  22. APO-MEGESTROL [Concomitant]
     Indication: DECREASED APPETITE
     Dosage: TOTAL DAILY DOSE: 480 MG
     Route: 048
     Dates: start: 20061201
  23. PHENAZO [Concomitant]
     Indication: PROSTATIC DISORDER
     Route: 048
     Dates: start: 20060910, end: 20061013
  24. CAP AVODART [Concomitant]
     Indication: PROSTATE EXAMINATION ABNORMAL
     Route: 048
     Dates: start: 20060916
  25. XATRAL [Concomitant]
     Indication: PROSTATE EXAMINATION ABNORMAL
     Route: 048
     Dates: start: 20060916
  26. APO-PROCHLORAZINE [Concomitant]
     Indication: NAUSEA
     Route: 048
     Dates: start: 20061113
  27. TRAMACET [Concomitant]
     Indication: PROSTATE EXAMINATION ABNORMAL
     Route: 048
     Dates: start: 20060912, end: 20060915
  28. HYCODAN [Concomitant]
     Indication: COUGH
     Route: 048
     Dates: start: 20060816, end: 20060830

REACTIONS (4)
  - CYANOSIS [None]
  - ILIAC ARTERY THROMBOSIS [None]
  - PAIN IN EXTREMITY [None]
  - PERIPHERAL COLDNESS [None]
